FAERS Safety Report 5409528-9 (Version None)
Quarter: 2007Q3

REPORT INFORMATION
  Report Type: 
  Country: None (occurrence: None)
  Receive Date: 20070808
  Receipt Date: 20070808
  Transmission Date: 20080115
  Serious: Yes (Hospitalization)
  Sender: FDA-Public Use
  Company Number: None

PATIENT
  Age: 68 Year
  Sex: Female
  Weight: 72.6 kg

DRUGS (6)
  1. GEMZAR [Suspect]
     Indication: BREAST CANCER METASTATIC
     Dosage: 1540 MG 1X IV DRIP
     Route: 041
     Dates: start: 20070720, end: 20070727
  2. ZOMETA [Concomitant]
  3. KEPPRA [Concomitant]
  4. FEMARA [Concomitant]
  5. ENALAPRIL MALEATE [Concomitant]
  6. PRILOSEC [Concomitant]

REACTIONS (3)
  - CONVULSION [None]
  - CONVULSIVE THRESHOLD LOWERED [None]
  - UNDERDOSE [None]
